FAERS Safety Report 13957721 (Version 1)
Quarter: 2017Q3

REPORT INFORMATION
  Report Type: Spontaneous
  Country: US (occurrence: US)
  Receive Date: 20170911
  Receipt Date: 20170911
  Transmission Date: 20171128
  Serious: No
  Sender: FDA-Public Use
  Company Number: US-ROCHE-1129793

PATIENT
  Sex: Female

DRUGS (7)
  1. RITUXAN [Suspect]
     Active Substance: RITUXIMAB
     Indication: POLYARTHRITIS
  2. GLIPIZIDE. [Concomitant]
     Active Substance: GLIPIZIDE
  3. IBUPROFEN. [Concomitant]
     Active Substance: IBUPROFEN
     Route: 048
  4. PREDNISONE. [Concomitant]
     Active Substance: PREDNISONE
  5. AVANDIA [Concomitant]
     Active Substance: ROSIGLITAZONE MALEATE
  6. RITUXAN [Suspect]
     Active Substance: RITUXIMAB
     Indication: RHEUMATOID ARTHRITIS
     Route: 065
  7. PLAQUENIL [Concomitant]
     Active Substance: HYDROXYCHLOROQUINE SULFATE

REACTIONS (3)
  - Arthralgia [Unknown]
  - Drug ineffective [Unknown]
  - Alopecia [Unknown]
